FAERS Safety Report 19268662 (Version 1)
Quarter: 2021Q2

REPORT INFORMATION
  Report Type: Spontaneous
  Country: US (occurrence: US)
  Receive Date: 20210517
  Receipt Date: 20210517
  Transmission Date: 20210717
  Serious: Yes (Other)
  Sender: FDA-Public Use
  Company Number: US-GLAXOSMITHKLINE-US2021GSK104159

PATIENT
  Sex: Male

DRUGS (4)
  1. ZANTAC [Suspect]
     Active Substance: RANITIDINE HYDROCHLORIDE
     Indication: PANCREATITIS
     Dosage: 75 MG, QD
     Route: 065
     Dates: start: 200501, end: 200912
  2. ZANTAC [Suspect]
     Active Substance: RANITIDINE HYDROCHLORIDE
     Indication: PANCREATITIS
     Dosage: 75 MG, QD
     Route: 065
     Dates: start: 200501, end: 200912
  3. RANITIDINE. [Suspect]
     Active Substance: RANITIDINE
     Indication: PANCREATITIS
     Dosage: 150 MG
     Route: 065
     Dates: start: 200901, end: 202003
  4. RANITIDINE. [Suspect]
     Active Substance: RANITIDINE
     Indication: PANCREATITIS
     Dosage: 150 MG
     Route: 065
     Dates: start: 200901, end: 202003

REACTIONS (1)
  - Bladder cancer [Unknown]
